FAERS Safety Report 13929384 (Version 1)
Quarter: 2017Q3

REPORT INFORMATION
  Report Type: Spontaneous
  Country: US (occurrence: US)
  Receive Date: 20170901
  Receipt Date: 20170901
  Transmission Date: 20171127
  Serious: Yes (Other)
  Sender: FDA-Public Use
  Company Number: None

PATIENT
  Age: 60 Year
  Sex: Male
  Weight: 78.75 kg

DRUGS (11)
  1. NEULASTA [Suspect]
     Active Substance: PEGFILGRASTIM
     Indication: CHRONIC LYMPHOCYTIC LEUKAEMIA
     Route: 058
  2. FLUDARABINE PHOSPHATE. [Concomitant]
     Active Substance: FLUDARABINE PHOSPHATE
  3. TURMERIC [Concomitant]
     Active Substance: HERBALS\TURMERIC
  4. CYCLOPHOSPHAMIDE. [Concomitant]
     Active Substance: CYCLOPHOSPHAMIDE
  5. ZINC ASPARTATE [Concomitant]
  6. BACTRIM DS [Concomitant]
     Active Substance: SULFAMETHOXAZOLE\TRIMETHOPRIM
  7. ALLOPURINOL. [Concomitant]
     Active Substance: ALLOPURINOL
  8. RITUXAN [Concomitant]
     Active Substance: RITUXIMAB
  9. IMBRUVICA [Concomitant]
     Active Substance: IBRUTINIB
  10. IMODIUM A-D [Concomitant]
     Active Substance: LOPERAMIDE HYDROCHLORIDE
  11. ACYCLOVIR. [Concomitant]
     Active Substance: ACYCLOVIR

REACTIONS (1)
  - Pyrexia [None]
